FAERS Safety Report 7727391-8 (Version None)
Quarter: 2011Q3

REPORT INFORMATION
  Report Type: 
  Country: None (occurrence: None)
  Receive Date: 20110902
  Receipt Date: 20110823
  Transmission Date: 20111222
  Serious: No
  Sender: FDA-Public Use
  Company Number: US-B.I. PHARMACEUTICALS,INC./RIDGEFIELD-2011-BP-20706BP

PATIENT
  Sex: Female

DRUGS (9)
  1. PLAVIX [Concomitant]
     Indication: CORONARY ARTERY DISEASE
     Route: 048
     Dates: start: 20060101
  2. VIT D [Concomitant]
     Indication: SUPPLEMENTATION THERAPY
  3. ALBUTEROL SULFATE AUTOHALER [Concomitant]
     Indication: SEASONAL ALLERGY
     Route: 055
     Dates: start: 20110201
  4. FISH OIL [Concomitant]
     Indication: CORONARY ARTERY DISEASE
     Dosage: 720 MG
     Route: 048
  5. ATENOLOL [Concomitant]
     Indication: HYPERTENSION
     Dosage: 50 MG
     Route: 048
     Dates: start: 20060101
  6. RANITIDINE [Concomitant]
     Indication: GASTRIC ULCER
     Dosage: 150 MG
     Route: 048
     Dates: start: 20100101
  7. MICARDIS [Suspect]
     Indication: HYPERTENSION
     Dosage: 40 MG
     Route: 048
     Dates: start: 20100101
  8. CHOLESTOFF [Concomitant]
     Indication: BLOOD CHOLESTEROL INCREASED
     Dosage: 1800 MG
     Dates: start: 20110201
  9. GLIMEPIRIDE [Concomitant]
     Indication: DIABETES MELLITUS
     Dosage: 4 MG
     Route: 048
     Dates: start: 20060101

REACTIONS (6)
  - DIZZINESS [None]
  - FATIGUE [None]
  - DYSPNOEA [None]
  - MUSCLE SPASMS [None]
  - LIMB DISCOMFORT [None]
  - RASH [None]
